FAERS Safety Report 21873718 (Version 1)
Quarter: 2023Q1

REPORT INFORMATION
  Report Type: Report from Study
  Country: IT (occurrence: IT)
  Receive Date: 20230117
  Receipt Date: 20230117
  Transmission Date: 20230418
  Serious: Yes (Other)
  Sender: FDA-Public Use
  Company Number: None

PATIENT
  Age: 69 Year
  Sex: Male

DRUGS (6)
  1. FUROSEMIDE [Suspect]
     Active Substance: FUROSEMIDE
     Indication: Product used for unknown indication
     Dosage: DOSAGE: 25UNIT OF MEASUREMENT: MILLIGRAMS
     Route: 048
  2. CANRENONE [Suspect]
     Active Substance: CANRENONE
     Indication: Ascites
     Dosage: 100 UNIT OF MEASUREMENT: MILLIGRAMS
     Route: 048
  3. PANTOPRAZOLE SODIUM [Concomitant]
     Active Substance: PANTOPRAZOLE SODIUM
     Dosage: 20 MILLIGRAMS, QD, ROUTE OF ADMINISTRATION: ORAL
     Route: 048
  4. Folina [Concomitant]
     Dosage: 5 MILLIGRAM ROUTE OF ADMINISTRATION: ORAL
     Route: 048
  5. CARVEDILOL [Concomitant]
     Active Substance: CARVEDILOL
     Dosage: DOSAGE: 6.25UNIT OF MEASUREMENT: MILLIGRAMS
     Route: 048
  6. GABAPENTIN [Concomitant]
     Active Substance: GABAPENTIN
     Dosage: DOSAGE: 600UNITS OF MEASURE: MILLIGRAMS
     Route: 048

REACTIONS (2)
  - Dyspnoea [Recovering/Resolving]
  - Hyponatraemia [Recovering/Resolving]

NARRATIVE: CASE EVENT DATE: 20220613
